FAERS Safety Report 23628803 (Version 1)
Quarter: 2024Q1

REPORT INFORMATION
  Report Type: Spontaneous
  Country: ES (occurrence: GB)
  Receive Date: 20240313
  Receipt Date: 20240313
  Transmission Date: 20240410
  Serious: Yes (Other)
  Sender: FDA-Public Use
  Company Number: GB-Breckenridge Pharmaceutical, Inc.-2154372

PATIENT
  Sex: Male

DRUGS (3)
  1. OMEPRAZOLE [Suspect]
     Active Substance: OMEPRAZOLE
     Route: 065
  2. CLOZAPINE [Suspect]
     Active Substance: CLOZAPINE
  3. QUETIAPINE [Concomitant]
     Active Substance: QUETIAPINE

REACTIONS (3)
  - Withdrawal syndrome [Unknown]
  - Drug interaction [Unknown]
  - Neuroleptic malignant syndrome [Unknown]
